FAERS Safety Report 5254345-6 (Version None)
Quarter: 2007Q1

REPORT INFORMATION
  Report Type: 
  Country: None (occurrence: None)
  Receive Date: 20070302
  Receipt Date: 20070223
  Transmission Date: 20070707
  Serious: Yes (Other)
  Sender: FDA-Public Use
  Company Number: BR-JNJFOC-20070206070

PATIENT
  Age: 39 Year
  Sex: Male
  Weight: 62 kg

DRUGS (2)
  1. EXTRA STRENGTH TYLENOL [Suspect]
     Route: 048
  2. EXTRA STRENGTH TYLENOL [Suspect]
     Indication: DENGUE FEVER
     Route: 048

REACTIONS (2)
  - HEPATITIS [None]
  - SKIN EXFOLIATION [None]
